FAERS Safety Report 6253564-X (Version None)
Quarter: 2009Q3

REPORT INFORMATION
  Report Type: 
  Country: None (occurrence: None)
  Receive Date: 20090701
  Receipt Date: 20090618
  Transmission Date: 20100115
  Serious: Yes (Hospitalization)
  Sender: FDA-Public Use
  Company Number: US-ELI_LILLY_AND_COMPANY-US200903005550

PATIENT
  Sex: Male
  Weight: 93.424 kg

DRUGS (24)
  1. SOMATROPIN [Suspect]
     Indication: GROWTH HORMONE DEFICIENCY
     Dosage: 0.1 MG, DAILY (1/D)
     Route: 058
     Dates: start: 20030708, end: 20030723
  2. AGGRENOX [Concomitant]
     Indication: PROPHYLAXIS
     Dates: start: 20050810
  3. ASPIRIN [Concomitant]
     Indication: PROPHYLAXIS
     Dosage: UNK, UNK
     Dates: start: 20080523
  4. BRIMONIDINE TARTRATE [Concomitant]
     Indication: GLAUCOMA
     Dates: start: 20050422
  5. CALCIUM WITH VITAMIN D [Concomitant]
     Indication: PROPHYLAXIS
     Dates: start: 20080316
  6. CITALOPRAM HYDROBROMIDE [Concomitant]
     Indication: DEPRESSION
     Dates: start: 20051115
  7. COLCHICINE [Concomitant]
     Indication: ANTIINFLAMMATORY THERAPY
     Dates: start: 19920320
  8. CYANOCOBALAMIN [Concomitant]
     Indication: ANAEMIA
     Dates: start: 20051215
  9. DOCUSATE SODIUM [Concomitant]
     Indication: CONSTIPATION PROPHYLAXIS
     Dates: start: 20080528
  10. DORZOLAMIDE [Concomitant]
     Indication: GLAUCOMA
     Dates: start: 20050422
  11. FINASTERIDE [Concomitant]
     Indication: URINARY RETENTION
     Dates: start: 19950718
  12. GABAPENTIN [Concomitant]
     Indication: ARTHRALGIA
     Dates: start: 20070410
  13. GALANTAMINE HYDROBROMIDE [Concomitant]
     Indication: DEMENTIA
     Dates: start: 20050303
  14. HYDROCORTISONE [Concomitant]
     Dates: start: 19980101
  15. NPH INSULIN [Concomitant]
     Indication: DIABETES MELLITUS
  16. ISOSORBIDE MONONITRATE [Concomitant]
     Indication: PROPHYLAXIS
     Dates: start: 20080416
  17. LEVOTHYROXINE SODIUM [Concomitant]
     Indication: HYPOTHYROIDISM
     Dates: start: 20010515
  18. LISINOPRIL [Concomitant]
     Indication: BLOOD PRESSURE
     Dates: start: 19911221
  19. METOPROLOL TARTRATE [Concomitant]
     Indication: BLOOD PRESSURE
     Dates: start: 20050708
  20. MULTI-VITAMIN [Concomitant]
     Indication: SUPPLEMENTATION THERAPY
     Dates: start: 20000217
  21. PYRIDOXINE HYDROCHLORIDE [Concomitant]
     Indication: SUPPLEMENTATION THERAPY
     Dates: start: 20040115
  22. SIMVASTATIN [Concomitant]
     Indication: BLOOD CHOLESTEROL
  23. TERAZOSIN HYDROCHLORIDE [Concomitant]
     Indication: BENIGN PROSTATIC HYPERPLASIA
     Dates: start: 20070410
  24. TRAVOPROST [Concomitant]
     Indication: GLAUCOMA

REACTIONS (1)
  - HEMIPARESIS [None]
